FAERS Safety Report 5277302-2 (Version None)
Quarter: 2007Q1

REPORT INFORMATION
  Report Type: 
  Country: None (occurrence: None)
  Receive Date: 20061213
  Receipt Date: 20040916
  Transmission Date: 20070707
  Serious: No
  Sender: FDA-Public Use
  Company Number: 2004UW16813

PATIENT
  Age: 43 Year
  Sex: Female

DRUGS (7)
  1. SEROQUEL [Suspect]
     Indication: BIPOLAR DISORDER
     Dosage: 400 MG DAILY PO
     Route: 048
     Dates: start: 20031016, end: 20040602
  2. SEROQUEL [Suspect]
     Indication: BIPOLAR DISORDER
     Dosage: 600 MG
  3. SYNTHROID [Concomitant]
  4. NORVASC [Concomitant]
  5. LEXAPRO [Concomitant]
  6. LITHIUM CARBONATE [Concomitant]
  7. NEURONTIN [Concomitant]

REACTIONS (7)
  - DYSARTHRIA [None]
  - EXTRAPYRAMIDAL DISORDER [None]
  - GAIT DISTURBANCE [None]
  - MEMORY IMPAIRMENT [None]
  - MUSCLE CONTRACTIONS INVOLUNTARY [None]
  - MUSCLE RIGIDITY [None]
  - TARDIVE DYSKINESIA [None]
